FAERS Safety Report 7031192-6 (Version None)
Quarter: 2010Q4

REPORT INFORMATION
  Report Type: 
  Country: None (occurrence: None)
  Receive Date: 20101006
  Receipt Date: 20100929
  Transmission Date: 20110411
  Serious: Yes (Hospitalization)
  Sender: FDA-Public Use
  Company Number: DE-CEPHALON-2010005280

PATIENT
  Age: 34 Year
  Sex: Male
  Weight: 70 kg

DRUGS (2)
  1. TREANDA [Suspect]
     Route: 042
     Dates: start: 20100601, end: 20100630
  2. RITUXIMAB [Suspect]
     Route: 042
     Dates: start: 20100531, end: 20100629

REACTIONS (1)
  - VIRAL INFECTION [None]
